FAERS Safety Report 4498985-0 (Version None)
Quarter: 2004Q4

REPORT INFORMATION
  Report Type: 
  Country: None (occurrence: None)
  Receive Date: 20041108
  Receipt Date: 20041026
  Transmission Date: 20050328
  Serious: Yes (Hospitalization)
  Sender: FDA-Public Use
  Company Number: 230013M04DEU

PATIENT
  Age: 32 Year
  Sex: Female

DRUGS (1)
  1. REBIF [Suspect]
     Indication: MULTIPLE SCLEROSIS
     Dosage: 44, 3 IN 1 WEEKS, SUBCUTANEOUS
     Route: 058
     Dates: start: 20030325

REACTIONS (3)
  - ARTHROPATHY [None]
  - BACK PAIN [None]
  - OSTEONECROSIS [None]
